FAERS Safety Report 15425322 (Version 1)
Quarter: 2018Q3

REPORT INFORMATION
  Report Type: Spontaneous
  Country: US (occurrence: US)
  Receive Date: 20180921
  Receipt Date: 20180921
  Transmission Date: 20181010
  Serious: Yes (Disabling)
  Sender: FDA-Public Use
  Company Number: None

PATIENT
  Age: 65 Year
  Sex: Female
  Weight: 83.25 kg

DRUGS (3)
  1. METOPROLOL TARTRATE 25 MG [Suspect]
     Active Substance: METOPROLOL TARTRATE
     Indication: HYPERTENSION
     Dosage: ?          QUANTITY:1 TABLET(S);?
     Route: 048
     Dates: start: 20180516, end: 20180921
  2. LEVOTHYROXINE. [Concomitant]
     Active Substance: LEVOTHYROXINE
  3. LOW DOSE POTASSIUM [Concomitant]

REACTIONS (12)
  - Hyperhidrosis [None]
  - Feeding disorder [None]
  - Peripheral swelling [None]
  - Cough [None]
  - Asthenia [None]
  - Respiratory tract congestion [None]
  - Abdominal pain upper [None]
  - Product substitution issue [None]
  - Chest pain [None]
  - Chest discomfort [None]
  - Middle insomnia [None]
  - Dyspnoea [None]

NARRATIVE: CASE EVENT DATE: 20180921
